FAERS Safety Report 4394589-9 (Version None)
Quarter: 2004Q3

REPORT INFORMATION
  Report Type: 
  Country: None (occurrence: None)
  Receive Date: 20040712
  Receipt Date: 20040701
  Transmission Date: 20050211
  Serious: Yes (Other)
  Sender: FDA-Public Use
  Company Number: JP-ROCHE-372857

PATIENT
  Age: 5 Year
  Sex: Male
  Weight: 19.5 kg

DRUGS (4)
  1. OSELTAMIVIR [Suspect]
     Indication: INFLUENZA
     Route: 048
     Dates: start: 20040206, end: 20040209
  2. BISOLVON [Concomitant]
     Indication: COUGH
     Route: 048
     Dates: start: 20040206, end: 20040209
  3. ASVERIN [Concomitant]
     Indication: COUGH
     Route: 048
     Dates: start: 20040206, end: 20040209
  4. ALIMEZINE [Concomitant]
     Route: 048
     Dates: start: 20040206, end: 20040209

REACTIONS (3)
  - CONDITION AGGRAVATED [None]
  - DELIRIUM [None]
  - PYREXIA [None]
